FAERS Safety Report 23936740 (Version 1)
Quarter: 2024Q2

REPORT INFORMATION
  Report Type: Spontaneous
  Country: US (occurrence: US)
  Receive Date: 20240604
  Receipt Date: 20240604
  Transmission Date: 20240716
  Serious: No
  Sender: FDA-Public Use
  Company Number: US-SA-SAC20240530000458

PATIENT
  Sex: Female
  Weight: 39 kg

DRUGS (1)
  1. DUPIXENT [Suspect]
     Active Substance: DUPILUMAB
     Indication: Asthma
     Dosage: 300 MG, QOW
     Route: 058

REACTIONS (12)
  - Fatigue [Unknown]
  - Injection site papule [Unknown]
  - Myalgia [Unknown]
  - Insomnia [Unknown]
  - Injection site rash [Unknown]
  - Injection site pain [Unknown]
  - Injection site pruritus [Unknown]
  - Arthralgia [Unknown]
  - Dry eye [Unknown]
  - Eye irritation [Unknown]
  - Eye pruritus [Unknown]
  - Injection site erythema [Unknown]
